FAERS Safety Report 14615202 (Version 2)
Quarter: 2018Q1

REPORT INFORMATION
  Report Type: Report from Study
  Country: US (occurrence: US)
  Receive Date: 20180308
  Receipt Date: 20180315
  Transmission Date: 20180509
  Serious: Yes (Hospitalization)
  Sender: FDA-Public Use
  Company Number: US-ACTELION-A-US2017-161626

PATIENT
  Age: 42 Year
  Sex: Male
  Weight: 70.3 kg

DRUGS (3)
  1. WARFARIN [Concomitant]
     Active Substance: WARFARIN
  2. TRACLEER [Suspect]
     Active Substance: BOSENTAN
     Indication: PULMONARY ARTERIAL HYPERTENSION
     Dosage: 125 MG, BID
     Route: 048
  3. ADCIRCA [Concomitant]
     Active Substance: TADALAFIL

REACTIONS (9)
  - Gout [Unknown]
  - Pharyngeal oedema [Unknown]
  - Oropharyngeal pain [Unknown]
  - Productive cough [Unknown]
  - Pain in extremity [Unknown]
  - Cough [Unknown]
  - Pneumonia [Unknown]
  - Chest pain [Unknown]
  - Condition aggravated [Unknown]
